FAERS Safety Report 4584276-6 (Version None)
Quarter: 2005Q1

REPORT INFORMATION
  Report Type: 
  Country: None (occurrence: None)
  Receive Date: 20050125
  Receipt Date: 20041103
  Transmission Date: 20050727
  Serious: No
  Sender: FDA-Public Use
  Company Number: USA041183056

PATIENT
  Age: 92 Year
  Sex: Female
  Weight: 52 kg

DRUGS (6)
  1. FORTEO [Suspect]
     Indication: OSTEOPOROSIS
     Dosage: 20 UG/1 DAY
     Dates: start: 20041024
  2. EXELON [Concomitant]
  3. NAMEDA (MEMANTINE HYDROCHLORIDE) [Concomitant]
  4. LEVOXYL [Concomitant]
  5. ACTONEL [Concomitant]
  6. OSCAL (CALCIUM CARBONATE) [Concomitant]

REACTIONS (2)
  - CONFUSIONAL STATE [None]
  - DIARRHOEA [None]
